FAERS Safety Report 16459033 (Version 2)
Quarter: 2019Q3

REPORT INFORMATION
  Report Type: Spontaneous
  Country: US (occurrence: US)
  Receive Date: 20190620
  Receipt Date: 20190925
  Transmission Date: 20191004
  Serious: No
  Sender: FDA-Public Use
  Company Number: US-THERAPEUTICSMD-2019TMD01026

PATIENT
  Age: 65 Year
  Sex: Female
  Weight: 68.48 kg

DRUGS (3)
  1. IMVEXXY [Suspect]
     Active Substance: ESTRADIOL
     Indication: VULVOVAGINAL PAIN
     Dosage: 10 ?G, 2X/WEEK ON SUNDAY AND WEDNESDAY AT NIGHT AT 10 PM
     Route: 067
     Dates: start: 20190224, end: 20190317
  2. XANAX [Concomitant]
     Active Substance: ALPRAZOLAM
  3. IMVEXXY [Suspect]
     Active Substance: ESTRADIOL
     Indication: VULVOVAGINAL DRYNESS

REACTIONS (15)
  - Headache [Recovering/Resolving]
  - Abdominal pain upper [Recovering/Resolving]
  - Insomnia [Recovering/Resolving]
  - Tremor [Recovering/Resolving]
  - Menopausal symptoms [Recovering/Resolving]
  - Immune system disorder [Recovering/Resolving]
  - Malaise [Not Recovered/Not Resolved]
  - Head discomfort [Recovering/Resolving]
  - Dizziness [Recovering/Resolving]
  - Vulvovaginal burning sensation [Recovering/Resolving]
  - Swelling of eyelid [Recovering/Resolving]
  - Anxiety [Recovering/Resolving]
  - Decreased appetite [Recovering/Resolving]
  - Night sweats [Recovering/Resolving]
  - Off label use [Recovered/Resolved]

NARRATIVE: CASE EVENT DATE: 2019
